FAERS Safety Report 24146879 (Version 1)
Quarter: 2024Q3

REPORT INFORMATION
  Report Type: Spontaneous
  Country: US (occurrence: None)
  Receive Date: 20240726
  Receipt Date: 20240726
  Transmission Date: 20241017
  Serious: Yes (Other)
  Sender: Public
  Company Number: None

PATIENT
  Age: 36 Year
  Sex: Male
  Weight: 108.9 kg

DRUGS (3)
  1. BUPROPION HYDROCHLORIDE [Suspect]
     Active Substance: BUPROPION HYDROCHLORIDE
     Indication: Weight decreased
     Dosage: 1 TABLET  ORAL
     Route: 048
     Dates: start: 20240711, end: 20240714
  2. NALTREXONE HYDROCHLORIDE [Suspect]
     Active Substance: NALTREXONE HYDROCHLORIDE
     Indication: Weight decreased
     Dosage: OTHER QUANTITY : 0.5 TABLET(S)?OTHER FREQUENCY : EVERY OTHER DAY?
     Route: 048
     Dates: start: 20240711, end: 20240713
  3. TESTOSTERONE [Concomitant]
     Active Substance: TESTOSTERONE

REACTIONS (7)
  - Anxiety [None]
  - Paranoia [None]
  - Hypervigilance [None]
  - Anxiety [None]
  - Insomnia [None]
  - Blood pressure increased [None]
  - Heart rate increased [None]

NARRATIVE: CASE EVENT DATE: 20240711
